FAERS Safety Report 7226671-2 (Version None)
Quarter: 2011Q1

REPORT INFORMATION
  Report Type: 
  Country: None (occurrence: None)
  Receive Date: 20110105
  Receipt Date: 20101229
  Transmission Date: 20110831
  Serious: Yes (Other)
  Sender: FDA-Public Use
  Company Number: 20109708

PATIENT
  Sex: Female

DRUGS (1)
  1. LIORESAL [Suspect]
     Indication: MUSCLE SPASTICITY
     Dosage: MCG, DAILY, INTRATHECAL
     Route: 037

REACTIONS (6)
  - PURULENCE [None]
  - INCISION SITE COMPLICATION [None]
  - NO THERAPEUTIC RESPONSE [None]
  - HYPERTONIA [None]
  - INCISION SITE ERYTHEMA [None]
  - INCISION SITE INFECTION [None]
